FAERS Safety Report 15584376 (Version 2)
Quarter: 2018Q4

REPORT INFORMATION
  Report Type: Spontaneous
  Country: JP (occurrence: JP)
  Receive Date: 20181105
  Receipt Date: 20181219
  Transmission Date: 20190205
  Serious: Yes (Death, Life-Threatening, Other)
  Sender: FDA-Public Use
  Company Number: JP-BRISTOL-MYERS SQUIBB COMPANY-BMS-2018-097876

PATIENT
  Age: 64 Year
  Sex: Female

DRUGS (1)
  1. OPDIVO [Suspect]
     Active Substance: NIVOLUMAB
     Indication: GASTRIC CANCER
     Dosage: 240 MG, UNK
     Route: 041
     Dates: start: 20180912, end: 20180926

REACTIONS (8)
  - Pneumonia aspiration [Unknown]
  - Malignant neoplasm progression [Unknown]
  - Dyspnoea [Unknown]
  - Erythema [Unknown]
  - Disseminated intravascular coagulation [Fatal]
  - Pneumonia bacterial [Unknown]
  - Lymphangiosis carcinomatosa [Fatal]
  - Pneumonia [Fatal]

NARRATIVE: CASE EVENT DATE: 20180913
